FAERS Safety Report 4925873-5 (Version None)
Quarter: 2006Q1

REPORT INFORMATION
  Report Type: 
  Country: None (occurrence: None)
  Receive Date: 20060228
  Receipt Date: 20050406
  Transmission Date: 20060701
  Serious: No
  Sender: FDA-Public Use
  Company Number: US-GLAXOSMITHKLINE-A0553030A

PATIENT
  Age: 46 Year
  Sex: Female

DRUGS (8)
  1. LAMICTAL [Suspect]
     Indication: BIPOLAR DISORDER
     Dosage: 150MG PER DAY
     Route: 048
     Dates: start: 20050201
  2. INSULIN [Concomitant]
  3. MIRAPEX [Concomitant]
  4. ACTOS [Concomitant]
  5. METFORMIN [Concomitant]
  6. TRICOR [Concomitant]
  7. CRESTOR [Concomitant]
  8. LAMISIL [Concomitant]

REACTIONS (4)
  - DERMATITIS ACNEIFORM [None]
  - HYPERGLYCAEMIA [None]
  - LYMPHADENOPATHY [None]
  - OEDEMA PERIPHERAL [None]
